FAERS Safety Report 5824874-2 (Version None)
Quarter: 2008Q3

REPORT INFORMATION
  Report Type: 
  Country: None (occurrence: None)
  Receive Date: 20080728
  Receipt Date: 20080703
  Transmission Date: 20090109
  Serious: No
  Sender: FDA-Public Use
  Company Number: US-BOEHRINGER INGELHEIM GMBH, GERMANY-2008-BP-10432BP

PATIENT
  Sex: Female

DRUGS (9)
  1. CATAPRES-TTS-1 [Suspect]
     Indication: HYPERTENSION
     Route: 061
     Dates: start: 20070701
  2. CATAPRES-TTS-1 [Suspect]
     Indication: BLOOD PRESSURE ABNORMAL
  3. VASOTEC [Concomitant]
  4. AVAPRO [Concomitant]
  5. SYNTHROID [Concomitant]
  6. ZETIA [Concomitant]
  7. VITAMIN D [Concomitant]
  8. SIMVASTATIN [Concomitant]
  9. NEXIUM [Concomitant]

REACTIONS (1)
  - APPLICATION SITE PRURITUS [None]
